FAERS Safety Report 9648993 (Version 1)
Quarter: 2013Q4

REPORT INFORMATION
  Report Type: Spontaneous
  Country: US (occurrence: None)
  Receive Date: 20131018
  Receipt Date: 20131018
  Transmission Date: 20140711
  Serious: Yes (Other)
  Sender: FDA-Public Use
  Company Number: AEGR000097

PATIENT
  Age: 61 Year
  Sex: Female
  Weight: 88.4 kg

DRUGS (9)
  1. JUXTAPID [Suspect]
     Indication: TYPE IIA HYPERLIPIDAEMIA
     Route: 048
     Dates: start: 20130614
  2. ZETIA (EZETIMIBE), 10 MG [Concomitant]
  3. LIPITOR (ATORVASTATIN CALCIUM), 80 MG [Concomitant]
  4. FENOFIBRATE (FENOFIBRATE), 160 MG [Concomitant]
  5. PLAVIX (CLOPIDOGREL BISULFATE), 75 MG [Concomitant]
  6. LORTAB (HYDROCODONE BILARTRATE, PARACETAMOL, PROMETHAZINE HYDROCHLORIDE) [Concomitant]
  7. ASPIRIN (ACETYLSALICYLIC ACID), 81 MG [Concomitant]
  8. VITAMIN B12 (CYANOCOBALAMIN) [Concomitant]
  9. LEVOTHYROXINE (LEVOTHYROXINE SODIUM), 100 MCG [Concomitant]

REACTIONS (7)
  - Malaise [None]
  - Dysphagia [None]
  - Oesophageal irritation [None]
  - Oesophageal pain [None]
  - Pleuritic pain [None]
  - Diarrhoea [None]
  - Decreased appetite [None]
